FAERS Safety Report 12961593 (Version 1)
Quarter: 2016Q4

REPORT INFORMATION
  Report Type: Spontaneous
  Country: IT (occurrence: IT)
  Receive Date: 20161121
  Receipt Date: 20161121
  Transmission Date: 20170207
  Serious: Yes (Other)
  Sender: FDA-Public Use
  Company Number: IT-TEVA-712293ISR

PATIENT
  Age: 68 Year
  Sex: Female

DRUGS (8)
  1. PARACETAMOL [Suspect]
     Active Substance: ACETAMINOPHEN
     Indication: ANALGESIC THERAPY
     Dosage: 500MG
     Route: 065
  2. CODEINE [Suspect]
     Active Substance: CODEINE
     Indication: ANALGESIC THERAPY
     Dosage: 30 MG/DAY
     Route: 065
  3. VORICONAZOLE. [Suspect]
     Active Substance: VORICONAZOLE
     Indication: ANTIFUNGAL TREATMENT
     Dosage: FOR THE FIRST DAY, THEN INCREASED
     Route: 042
  4. VORICONAZOLE. [Suspect]
     Active Substance: VORICONAZOLE
     Indication: ANTIFUNGAL TREATMENT
     Dosage: FOR 10 DAYS, THEN CHANGED TO ORAL ROUTE
     Route: 042
  5. VANCOMYCIN [Concomitant]
     Active Substance: VANCOMYCIN
     Dosage: 50 MG/ML EYEDROPS SIX TIMES PER DAY
     Route: 061
  6. VORICONAZOLE. [Suspect]
     Active Substance: VORICONAZOLE
     Indication: ANTIFUNGAL TREATMENT
     Route: 048
  7. GABAPENTIN. [Suspect]
     Active Substance: GABAPENTIN
     Indication: ANALGESIC THERAPY
     Dosage: 300 MG/DAY
     Route: 065
  8. CEFTAZIDIME. [Concomitant]
     Active Substance: CEFTAZIDIME
     Dosage: 50 MG/ML EYEDROPS SIX TIMES PER DAY
     Route: 061

REACTIONS (9)
  - Hepatocellular injury [Unknown]
  - Hallucination, visual [Recovering/Resolving]
  - Movement disorder [Recovering/Resolving]
  - Hepatotoxicity [Unknown]
  - Gait disturbance [Recovering/Resolving]
  - Ataxia [Recovering/Resolving]
  - Nervous system disorder [Recovering/Resolving]
  - Cholestasis [Unknown]
  - Psychomotor skills impaired [Recovering/Resolving]
